FAERS Safety Report 8830041 (Version 1)
Quarter: 2012Q4

REPORT INFORMATION
  Report Type: Spontaneous
  Country: US (occurrence: None)
  Receive Date: 20121004
  Receipt Date: 20121004
  Transmission Date: 20130627
  Serious: Yes (Other)
  Sender: FDA-Public Use
  Company Number: DSA_59904_2012

PATIENT
  Sex: Female

DRUGS (19)
  1. DILTIAZEM HYDROCHLORIDE [Suspect]
     Indication: HYPERTENSION
     Route: 048
  2. REVATIO [Suspect]
     Indication: PULMONARY ARTERIAL HYPERTENSION
  3. OMEGA-3 [Suspect]
     Indication: PRODUCT USED FOR UNKNOWN INDICATION
     Dosage: (DF)
  4. CALCIUM CARBONATE [Suspect]
     Indication: PRODUCT USED FOR UNKNOWN INDICATION
     Dosage: (DF)
  5. CITALOPRAM HYDROBROMIDE [Suspect]
     Indication: DEPRESSION
     Route: 048
  6. TRACLEER [Suspect]
     Indication: PULMONARY ARTERIAL HYPERTENSION
  7. ACETAMINOPHEN (+) TRAMADOL HYDROCHLORIDE [Suspect]
     Indication: ARTHRITIS
     Route: 048
  8. METOPROLOL TARTRATE [Suspect]
     Indication: HEART RATE DECREASED
     Route: 048
  9. DIGOXIN [Suspect]
     Indication: PRODUCT USED FOR UNKNOWN INDICATION
  10. METOLAZONE [Suspect]
     Indication: FLUID RETENTION
  11. PEPCID [Suspect]
     Indication: GASTROOESOPHAGEAL REFLUX DISEASE
  12. ALLOPURINOL [Suspect]
     Indication: GOUT
     Route: 048
  13. COUMADIN [Suspect]
     Indication: THROMBOSIS
     Dosage: (DF)
  14. COUMADIN [Suspect]
     Indication: THROMBOSIS
     Dosage: 15 mg daily except Thursday when the patient takes 20 mg daily
  15. KLOR-CON [Suspect]
     Indication: BLOOD POTASSIUM DECREASED
  16. IRON [Suspect]
     Indication: ANAEMIA
     Dosage: DF
     Route: 048
  17. MAGNESIUM [Suspect]
     Indication: PRODUCT USED FOR UNKNOWN INDICATION
     Dosage: DF
  18. ZINC [Concomitant]
     Indication: PRODUCT USED FOR UNKNOWN INDICATION
     Dosage: DF
  19. CREAM (NOS) [Suspect]
     Indication: PSORIASIS
     Dosage: DF

REACTIONS (9)
  - Pruritus [None]
  - Swelling [None]
  - Urticaria [None]
  - Oedema peripheral [None]
  - Somnolence [None]
  - Insomnia [None]
  - Restlessness [None]
  - Gait disturbance [None]
  - Drug interaction [None]
